FAERS Safety Report 22677877 (Version 3)
Quarter: 2023Q4

REPORT INFORMATION
  Report Type: Spontaneous
  Country: US (occurrence: US)
  Receive Date: 20230706
  Receipt Date: 20231122
  Transmission Date: 20240109
  Serious: No
  Sender: FDA-Public Use
  Company Number: US-SA-SAC20230703000563

PATIENT
  Sex: Male

DRUGS (1)
  1. DUPIXENT [Suspect]
     Active Substance: DUPILUMAB
     Dosage: 300 MG, OTHER
     Route: 058

REACTIONS (6)
  - Disease progression [Unknown]
  - Toothache [Unknown]
  - Sinusitis [Unknown]
  - Eye pruritus [Unknown]
  - Dry eye [Unknown]
  - Therapeutic response decreased [Unknown]
